FAERS Safety Report 11261335 (Version 3)
Quarter: 2015Q4

REPORT INFORMATION
  Report Type: Spontaneous
  Country: CH (occurrence: CH)
  Receive Date: 20150710
  Receipt Date: 20151130
  Transmission Date: 20160304
  Serious: Yes (Hospitalization)
  Sender: FDA-Public Use
  Company Number: CH-ABBVIE-15P-151-1424731-00

PATIENT
  Age: 74 Year
  Sex: Female
  Weight: 64.3 kg

DRUGS (2)
  1. KLACID 500MG [Suspect]
     Active Substance: CLARITHROMYCIN
     Indication: SINUSITIS
     Route: 048
     Dates: start: 20150421, end: 20150424
  2. KLACID 500MG [Suspect]
     Active Substance: CLARITHROMYCIN
     Indication: UPPER RESPIRATORY TRACT INFECTION

REACTIONS (3)
  - Thrombocytopenia [Recovered/Resolved]
  - Mixed liver injury [Recovering/Resolving]
  - Leukopenia [Recovered/Resolved]

NARRATIVE: CASE EVENT DATE: 20150424
